FAERS Safety Report 24409753 (Version 2)
Quarter: 2024Q4

REPORT INFORMATION
  Report Type: Spontaneous
  Country: LB (occurrence: LB)
  Receive Date: 20241008
  Receipt Date: 20241009
  Transmission Date: 20250114
  Serious: Yes (Other)
  Sender: ROCHE
  Company Number: LB-ROCHE-10000098233

PATIENT
  Age: 57 Year
  Sex: Male

DRUGS (17)
  1. OBINUTUZUMAB [Suspect]
     Active Substance: OBINUTUZUMAB
     Indication: Follicular lymphoma
     Route: 065
     Dates: start: 20240426
  2. RITUXIMAB [Suspect]
     Active Substance: RITUXIMAB
     Indication: Follicular lymphoma
     Route: 065
     Dates: start: 20240426
  3. CYCLOPHOSPHAMIDE [Suspect]
     Active Substance: CYCLOPHOSPHAMIDE
     Indication: Follicular lymphoma
     Route: 065
  4. PREDNISONE [Suspect]
     Active Substance: PREDNISONE
     Indication: Follicular lymphoma
     Route: 065
  5. OXALIPLATIN [Suspect]
     Active Substance: OXALIPLATIN
     Indication: Follicular lymphoma
     Route: 065
  6. CYTARABINE [Suspect]
     Active Substance: CYTARABINE
     Indication: Follicular lymphoma
     Route: 065
  7. EPIRUBICIN [Suspect]
     Active Substance: EPIRUBICIN
     Indication: Follicular lymphoma
     Route: 065
  8. VINCRISTINE SULFATE [Suspect]
     Active Substance: VINCRISTINE SULFATE
     Indication: Follicular lymphoma
     Route: 065
  9. BENDAMUSTINE [Suspect]
     Active Substance: BENDAMUSTINE
     Indication: Follicular lymphoma
     Route: 065
  10. VALTREX [Concomitant]
     Active Substance: VALACYCLOVIR HYDROCHLORIDE
  11. BACTRIM MFW [Concomitant]
  12. BISOPROLOL FUMARATE [Concomitant]
     Active Substance: BISOPROLOL FUMARATE
  13. CRESTOR [Concomitant]
     Active Substance: ROSUVASTATIN CALCIUM
  14. INDAPAMIDE\PERINDOPRIL [Concomitant]
     Active Substance: INDAPAMIDE\PERINDOPRIL
  15. EUTHYROX [Concomitant]
     Active Substance: LEVOTHYROXINE SODIUM
  16. NEXIUM [Concomitant]
     Active Substance: ESOMEPRAZOLE MAGNESIUM
  17. MAGNESIUM [Concomitant]
     Active Substance: MAGNESIUM

REACTIONS (1)
  - Disease progression [Unknown]

NARRATIVE: CASE EVENT DATE: 20240901
